FAERS Safety Report 6974648-4 (Version None)
Quarter: 2010Q3

REPORT INFORMATION
  Report Type: 
  Country: None (occurrence: None)
  Receive Date: 20100909
  Receipt Date: 20081203
  Transmission Date: 20110219
  Serious: No
  Sender: FDA-Public Use
  Company Number: US-WYE-H07097608

PATIENT
  Sex: Female
  Weight: 57.66 kg

DRUGS (3)
  1. PRISTIQ [Suspect]
     Indication: DEPRESSION
     Route: 048
     Dates: start: 20081008, end: 20080101
  2. PRISTIQ [Suspect]
     Route: 048
     Dates: start: 20080101, end: 20081101
  3. PRISTIQ [Suspect]
     Route: 048
     Dates: start: 20081101

REACTIONS (15)
  - ALOPECIA [None]
  - CARDIOVASCULAR DISORDER [None]
  - CONDITION AGGRAVATED [None]
  - DRUG WITHDRAWAL SYNDROME [None]
  - EYE DISORDER [None]
  - FEELING ABNORMAL [None]
  - FOOD CRAVING [None]
  - INCREASED APPETITE [None]
  - INSOMNIA [None]
  - LETHARGY [None]
  - MYDRIASIS [None]
  - OCULAR HYPERAEMIA [None]
  - UNEVALUABLE EVENT [None]
  - VISION BLURRED [None]
  - VISUAL IMPAIRMENT [None]
